FAERS Safety Report 21530507 (Version 1)
Quarter: 2022Q4

REPORT INFORMATION
  Report Type: Spontaneous
  Country: US (occurrence: None)
  Receive Date: 20221028
  Receipt Date: 20221028
  Transmission Date: 20230112
  Serious: No
  Sender: FDA-Public Use
  Company Number: None

PATIENT
  Sex: Female

DRUGS (2)
  1. OPSUMIT [Suspect]
     Active Substance: MACITENTAN
     Indication: Pulmonary arterial hypertension
     Dosage: FREQUENCY : DAILY;?
     Route: 048
     Dates: start: 202109
  2. ORENITRAM [Suspect]
     Active Substance: TREPROSTINIL

REACTIONS (4)
  - Back pain [None]
  - Bone pain [None]
  - Pain in extremity [None]
  - Therapy non-responder [None]
